FAERS Safety Report 9703810 (Version 1)
Quarter: 2013Q4

REPORT INFORMATION
  Report Type: Spontaneous
  Country: US (occurrence: None)
  Receive Date: 20131121
  Receipt Date: 20131121
  Transmission Date: 20140711
  Serious: No
  Sender: FDA-Public Use
  Company Number: None

PATIENT
  Age: 45 Year
  Sex: Female

DRUGS (1)
  1. NEULASTA 6MG AMGEN [Suspect]
     Indication: BREAST CANCER
     Dosage: 6MG  Q21 DAYS  SQ
     Route: 058
     Dates: start: 20131105

REACTIONS (3)
  - Fatigue [None]
  - Pain [None]
  - Burning sensation [None]
